FAERS Safety Report 6610834-0 (Version None)
Quarter: 2010Q1

REPORT INFORMATION
  Report Type: 
  Country: None (occurrence: None)
  Receive Date: 20100219
  Receipt Date: 20100210
  Transmission Date: 20100710
  Serious: Yes (Death, Life-Threatening, Hospitalization, Other)
  Sender: FDA-Public Use
  Company Number: 502348

PATIENT
  Age: 62 Year
  Sex: Male

DRUGS (6)
  1. HEPARIN SODIUM INJECTION [Suspect]
     Indication: DRUG USE FOR UNKNOWN INDICATION
     Dosage: INTRAVENOUS (NOT OTHERWISE SPECIFIED)
     Route: 042
  2. WARFARIN SODIUM [Suspect]
     Indication: DRUG USE FOR UNKNOWN INDICATION
     Dosage: 1 DOSAGE FORM, 1 DAY, ORAL
     Route: 048
  3. ACETAMINOPHEN [Concomitant]
  4. MULTI-VITAMINS [Concomitant]
  5. OXYCODONE HCL AND ACETAMINOPHEN [Concomitant]
  6. NICOTINE [Concomitant]

REACTIONS (12)
  - CEREBRAL HAEMORRHAGE [None]
  - CEREBRAL VENTRICLE DILATATION [None]
  - CONDITION AGGRAVATED [None]
  - CONVULSION [None]
  - DEPRESSED LEVEL OF CONSCIOUSNESS [None]
  - HEMIPARESIS [None]
  - HEMIPLEGIA [None]
  - MENINGITIS [None]
  - NON-SMALL CELL LUNG CANCER METASTATIC [None]
  - SEPSIS [None]
  - SUBDURAL HAEMORRHAGE [None]
  - VISUAL FIELD DEFECT [None]
